FAERS Safety Report 4973424-1 (Version None)
Quarter: 2006Q2

REPORT INFORMATION
  Report Type: 
  Country: None (occurrence: None)
  Receive Date: 20060413
  Receipt Date: 20060413
  Transmission Date: 20061013
  Serious: Yes (Hospitalization)
  Sender: FDA-Public Use
  Company Number: None

PATIENT
  Age: 51 Year
  Sex: Female
  Weight: 73 kg

DRUGS (12)
  1. DIGOXIN [Suspect]
     Indication: ATRIAL FIBRILLATION
     Dosage: 0.25 MG DAILY PO
     Route: 048
  2. FLEXERIL [Concomitant]
  3. LASIX [Concomitant]
  4. TESSALON [Concomitant]
  5. COMPAZINE [Concomitant]
  6. WELLBUTRIN SR [Concomitant]
  7. RESTORIL [Concomitant]
  8. POTASSIUM CHLORIDE [Concomitant]
  9. ALDATONE [Concomitant]
  10. COUMADIN [Concomitant]
  11. PREVACID [Concomitant]
  12. B12 [Concomitant]

REACTIONS (5)
  - ANOREXIA [None]
  - ASTHENIA [None]
  - DEHYDRATION [None]
  - PNEUMONIA [None]
  - THERAPEUTIC AGENT TOXICITY [None]
